FAERS Safety Report 12799369 (Version 2)
Quarter: 2016Q4

REPORT INFORMATION
  Report Type: Spontaneous
  Country: JP (occurrence: JP)
  Receive Date: 20160930
  Receipt Date: 20161012
  Transmission Date: 20170207
  Serious: Yes (Hospitalization)
  Sender: FDA-Public Use
  Company Number: JP-JNJFOC-20160922037

PATIENT
  Age: 85 Year
  Sex: Male
  Weight: 64 kg

DRUGS (13)
  1. GLIMICRON [Concomitant]
     Active Substance: GLICLAZIDE
     Indication: TYPE 2 DIABETES MELLITUS
     Route: 048
     Dates: start: 20160407, end: 20160814
  2. PLETAAL [Concomitant]
     Active Substance: CILOSTAZOL
     Indication: CEREBRAL INFARCTION
     Route: 048
     Dates: start: 20160829
  3. MOSAPRIDE [Concomitant]
     Active Substance: MOSAPRIDE
     Indication: GASTRITIS
     Route: 048
     Dates: start: 20160407, end: 20160814
  4. MUCODYNE [Concomitant]
     Active Substance: CARBOCYSTEINE
     Indication: PNEUMONIA
     Route: 048
     Dates: start: 20160407, end: 20160814
  5. PLETAAL [Concomitant]
     Active Substance: CILOSTAZOL
     Indication: CEREBRAL INFARCTION
     Route: 048
     Dates: start: 20160407, end: 20160814
  6. AMITIZA [Concomitant]
     Active Substance: LUBIPROSTONE
     Indication: CONSTIPATION
     Route: 048
     Dates: start: 20160407, end: 20160814
  7. FAMOTIDINE. [Concomitant]
     Active Substance: FAMOTIDINE
     Indication: GASTRITIS
     Route: 048
     Dates: start: 20160829
  8. SODIUM PICOSULFATE [Concomitant]
     Active Substance: SODIUM PICOSULFATE
     Route: 065
     Dates: start: 20160407
  9. CANAGLU [Suspect]
     Active Substance: CANAGLIFLOZIN
     Indication: TYPE 2 DIABETES MELLITUS
     Route: 048
     Dates: start: 20160712, end: 20160814
  10. FUROSEMIDE. [Suspect]
     Active Substance: FUROSEMIDE
     Indication: HYPERTENSION
     Route: 048
     Dates: start: 20160407, end: 20160814
  11. SARPOGRELATE HYDROCHLORIDE [Concomitant]
     Active Substance: SARPOGRELATE
     Indication: ARTERIAL OCCLUSIVE DISEASE
     Route: 048
     Dates: start: 20160407, end: 20160814
  12. DAIKENCHUTO [Concomitant]
     Active Substance: HERBALS
     Indication: GASTRITIS
     Route: 048
     Dates: start: 20160407, end: 20160814
  13. FAMOTIDINE. [Concomitant]
     Active Substance: FAMOTIDINE
     Indication: GASTRITIS
     Route: 048
     Dates: start: 20160407, end: 20160814

REACTIONS (3)
  - Urosepsis [Recovered/Resolved]
  - Dehydration [Recovered/Resolved]
  - Urinary tract infection [Recovered/Resolved]

NARRATIVE: CASE EVENT DATE: 20160815
